FAERS Safety Report 6344237-3 (Version None)
Quarter: 2009Q3

REPORT INFORMATION
  Report Type: 
  Country: None (occurrence: None)
  Receive Date: 20090908
  Receipt Date: 20090821
  Transmission Date: 20100115
  Serious: Yes (Other)
  Sender: FDA-Public Use
  Company Number: RO-ROCHE-652128

PATIENT
  Sex: Female
  Weight: 58 kg

DRUGS (8)
  1. PEGASYS [Suspect]
     Route: 058
     Dates: start: 20081121, end: 20090730
  2. COPEGUS [Suspect]
     Dosage: DOSE: 600 MG DAILY
     Route: 048
     Dates: start: 20081121
  3. COPEGUS [Suspect]
     Route: 048
  4. COPEGUS [Suspect]
     Route: 048
     Dates: end: 20090615
  5. FOLIC ACID [Concomitant]
     Route: 048
     Dates: start: 20090601
  6. VITAMIN [Concomitant]
     Dosage: DRUG NAME: MILLGAMMA (VITAMINS)
     Route: 048
     Dates: start: 20090601
  7. NEORECORMON [Concomitant]
     Dosage: DOSE, ROUTE, FREQUENCY: UNKNOWN.
     Route: 065
     Dates: start: 20090501
  8. SOLUMEDROL OR PLACEBO [Concomitant]
     Indication: DRUG USE FOR UNKNOWN INDICATION
     Dosage: DRUG NAME REPORTED AS SOLUMEDROL.
     Dates: start: 20090801

REACTIONS (3)
  - ANAEMIA MACROCYTIC [None]
  - HAEMOLYTIC ANAEMIA [None]
  - VASCULAR PURPURA [None]
